FAERS Safety Report 7103370-9 (Version None)
Quarter: 2010Q4

REPORT INFORMATION
  Report Type: 
  Country: None (occurrence: None)
  Receive Date: 20101115
  Receipt Date: 20090507
  Transmission Date: 20110411
  Serious: No
  Sender: FDA-Public Use
  Company Number: US-KINGPHARMUSA00001-K200900566

PATIENT
  Sex: Female
  Weight: 45.805 kg

DRUGS (2)
  1. CYTOMEL [Suspect]
     Indication: THYROID DISORDER
     Dosage: 5 MCG, QID
     Route: 048
     Dates: start: 20090201
  2. PRILOSEC [Suspect]
     Indication: REFLUX OESOPHAGITIS
     Dosage: UNK
     Route: 048

REACTIONS (3)
  - CHEST DISCOMFORT [None]
  - DRUG INEFFECTIVE [None]
  - FEELING ABNORMAL [None]
